FAERS Safety Report 4527876-1 (Version None)
Quarter: 2004Q4

REPORT INFORMATION
  Report Type: 
  Country: None (occurrence: None)
  Receive Date: 20041123
  Receipt Date: 20040317
  Transmission Date: 20050328
  Serious: Yes (Other)
  Sender: FDA-Public Use
  Company Number: HQWYE956518MAR04

PATIENT
  Age: 87 Year
  Sex: Male

DRUGS (7)
  1. ZOSYN [Suspect]
     Indication: PNEUMONIA
     Dosage: 3.375 G 1X PER 8 HR, INTRAVENOUS
     Route: 042
     Dates: start: 20040315
  2. PEPCID [Concomitant]
  3. VASOTEC [Concomitant]
  4. TYLENOL [Concomitant]
  5. CLINDAMYCIN (CLINDAMYCIN) [Concomitant]
  6. ALBUTEROL [Concomitant]
  7. ATROVENT [Concomitant]

REACTIONS (1)
  - INTERNATIONAL NORMALISED RATIO INCREASED [None]
